FAERS Safety Report 4689254-4 (Version None)
Quarter: 2005Q2

REPORT INFORMATION
  Report Type: 
  Country: None (occurrence: None)
  Receive Date: 20050613
  Receipt Date: 20050310
  Transmission Date: 20051028
  Serious: Yes (Hospitalization, Other)
  Sender: FDA-Public Use
  Company Number: US-MERCK-0503USA01932

PATIENT
  Age: 58 Year
  Sex: Female
  Weight: 124 kg

DRUGS (2)
  1. VIOXX [Suspect]
     Indication: ARTHRITIS
     Route: 048
     Dates: start: 20030101, end: 20040901
  2. DIOVAN [Concomitant]
     Indication: DIABETES MELLITUS
     Route: 065
     Dates: start: 20010829, end: 20040101

REACTIONS (20)
  - ANXIETY [None]
  - ARTHRALGIA [None]
  - ASTHENIA [None]
  - CEREBRAL ATHEROSCLEROSIS [None]
  - CEREBROVASCULAR ACCIDENT [None]
  - DIABETES MELLITUS [None]
  - DYSPHAGIA [None]
  - EMOTIONAL DISTRESS [None]
  - GASTROENTERITIS [None]
  - GASTROOESOPHAGEAL REFLUX DISEASE [None]
  - HYPERTENSION [None]
  - HYPOAESTHESIA [None]
  - HYPOAESTHESIA ORAL [None]
  - INCREASED TENDENCY TO BRUISE [None]
  - NEUROPATHY PERIPHERAL [None]
  - PARAESTHESIA [None]
  - PHARYNGOLARYNGEAL PAIN [None]
  - REFUSAL OF TREATMENT BY PATIENT [None]
  - TEMPERATURE INTOLERANCE [None]
  - TRANSIENT ISCHAEMIC ATTACK [None]
